FAERS Safety Report 5228005-1 (Version None)
Quarter: 2007Q1

REPORT INFORMATION
  Report Type: 
  Country: None (occurrence: None)
  Receive Date: 20061205
  Receipt Date: 20061013
  Transmission Date: 20070707
  Serious: No
  Sender: FDA-Public Use
  Company Number: PHEH2006US12931

PATIENT
  Age: 40 Year
  Sex: Female

DRUGS (4)
  1. EXJADE [Suspect]
     Indication: IRON OVERLOAD
     Dosage: SEE IMAGE
     Route: 048
     Dates: start: 20060201, end: 20060501
  2. EXJADE [Suspect]
     Indication: IRON OVERLOAD
     Dosage: SEE IMAGE
     Route: 048
     Dates: start: 20060501, end: 20060801
  3. EXJADE [Suspect]
     Indication: IRON OVERLOAD
     Dosage: SEE IMAGE
     Route: 048
     Dates: start: 20060801, end: 20060901
  4. EXJADE [Suspect]
     Indication: IRON OVERLOAD
     Dosage: SEE IMAGE
     Route: 048
     Dates: start: 20060901

REACTIONS (2)
  - BLOOD UREA INCREASED [None]
  - PARAESTHESIA [None]
